FAERS Safety Report 4376158-X (Version None)
Quarter: 2004Q2

REPORT INFORMATION
  Report Type: 
  Country: None (occurrence: None)
  Receive Date: 20040607
  Receipt Date: 20040524
  Transmission Date: 20050107
  Serious: No
  Sender: FDA-Public Use
  Company Number: 04P-020-0257322-00

PATIENT
  Age: 18 Year
  Sex: Female

DRUGS (1)
  1. MERIDIA [Suspect]
     Dosage: 10 MG, 2 IN 1 D, ORAL
     Route: 048
     Dates: start: 20040101

REACTIONS (3)
  - ANXIETY [None]
  - NERVOUSNESS [None]
  - PANIC DISORDER [None]
